FAERS Safety Report 5215345-5 (Version None)
Quarter: 2007Q1

REPORT INFORMATION
  Report Type: 
  Country: None (occurrence: None)
  Receive Date: 20070116
  Receipt Date: 20061205
  Transmission Date: 20070707
  Serious: Yes (Death)
  Sender: FDA-Public Use
  Company Number: 9039997-2006-00138

PATIENT

DRUGS (3)
  1. 5-AMINOLAEVULINIC ACID, 20% [Suspect]
     Indication: BASAL CELL CARCINOMA
     Dosage: 20%, TOPICAL
     Route: 061
  2. LIDOCAINE [Concomitant]
  3. EMLA [Concomitant]

REACTIONS (1)
  - DEATH [None]
